FAERS Safety Report 21693409 (Version 1)
Quarter: 2022Q4

REPORT INFORMATION
  Report Type: Spontaneous
  Country: CN (occurrence: CN)
  Receive Date: 20221207
  Receipt Date: 20221207
  Transmission Date: 20230113
  Serious: Yes (Other)
  Sender: FDA-Public Use
  Company Number: CN-SA-SAC20221206000879

PATIENT
  Age: 59 Year
  Sex: Female

DRUGS (4)
  1. OXALIPLATIN [Suspect]
     Active Substance: OXALIPLATIN
     Indication: Colon cancer
     Dosage: 120 MG, QD
     Route: 041
     Dates: start: 20221113, end: 20221113
  2. FLUOROURACIL [Suspect]
     Active Substance: FLUOROURACIL
     Indication: Colon cancer
     Dosage: 0.5 G, QD
     Route: 041
     Dates: start: 20221113, end: 20221113
  3. FLUOROURACIL [Suspect]
     Active Substance: FLUOROURACIL
     Dosage: 3.5 G, QD
     Route: 041
     Dates: start: 20221113, end: 20221113
  4. LEUCOVORIN CALCIUM [Concomitant]
     Active Substance: LEUCOVORIN CALCIUM
     Dosage: 500 MG

REACTIONS (1)
  - Drug-induced liver injury [Unknown]

NARRATIVE: CASE EVENT DATE: 20221127
